FAERS Safety Report 8272910-9 (Version None)
Quarter: 2012Q2

REPORT INFORMATION
  Report Type: 
  Country: None (occurrence: None)
  Receive Date: 20120409
  Receipt Date: 20120409
  Transmission Date: 20120825
  Serious: Yes (Other)
  Sender: FDA-Public Use
  Company Number: None

PATIENT

DRUGS (1)
  1. LEVOTHYROXINE SODIUM [Suspect]
     Dosage: 50MCG QD PO
     Route: 048
     Dates: start: 20070101

REACTIONS (1)
  - THERAPEUTIC RESPONSE DECREASED [None]
